FAERS Safety Report 9031740 (Version 1)
Quarter: 2013Q1

REPORT INFORMATION
  Report Type: Spontaneous
  Country: US (occurrence: US)
  Receive Date: 20130124
  Receipt Date: 20130124
  Transmission Date: 20140127
  Serious: Yes (Other)
  Sender: FDA-Public Use
  Company Number: US-PFIZER INC-2013024171

PATIENT
  Age: 25 Year
  Sex: Female

DRUGS (2)
  1. DOXYCYCLINE CALCIUM [Suspect]
     Indication: ARTHROPOD BITE
     Dosage: 100 MG, 2X/DAY, 3-WK COURSE
  2. DOXYCYCLINE CALCIUM [Suspect]
     Indication: RASH

REACTIONS (2)
  - Gastritis erosive [Recovered/Resolved]
  - Oesophagitis [Recovered/Resolved]
